FAERS Safety Report 9782555 (Version 2)
Quarter: 2014Q1

REPORT INFORMATION
  Report Type: Spontaneous
  Country: US (occurrence: US)
  Receive Date: 20131226
  Receipt Date: 20140217
  Transmission Date: 20141002
  Serious: Yes (Other)
  Sender: FDA-Public Use
  Company Number: US-UCBSA-106490

PATIENT
  Age: 50 Year
  Sex: Male

DRUGS (9)
  1. VIMPAT [Suspect]
     Dosage: UNKNOWN
  2. POTIGA [Suspect]
     Indication: CONVULSION
     Route: 048
     Dates: start: 20130405, end: 2013
  3. POTIGA [Suspect]
     Indication: CONVULSION
     Dosage: UNKNOWN
     Route: 048
     Dates: start: 2013, end: 2013
  4. POTIGA [Suspect]
     Indication: CONVULSION
     Route: 048
     Dates: start: 20130622
  5. POTIGA [Suspect]
     Indication: CONVULSION
     Dosage: UNSPECIFIED DOSE
     Route: 048
  6. POTIGA [Suspect]
     Indication: CONVULSION
     Route: 048
  7. TEGRETOL [Concomitant]
     Dosage: UNKNOWN
  8. KEPPRA [Concomitant]
     Dosage: UNKNOWN
  9. LORAZEPAM [Concomitant]
     Dosage: UNKNOWN

REACTIONS (13)
  - Complex partial seizures [Unknown]
  - Eyelid disorder [Unknown]
  - Soliloquy [Unknown]
  - Logorrhoea [Recovering/Resolving]
  - Movement disorder [Recovering/Resolving]
  - Abnormal behaviour [Unknown]
  - Hypokinesia [Unknown]
  - Confusional state [Unknown]
  - Headache [Unknown]
  - Dysuria [Recovering/Resolving]
  - Chromaturia [Recovering/Resolving]
  - Urine abnormality [Recovering/Resolving]
  - Urobilinogen urine increased [Recovering/Resolving]
